FAERS Safety Report 8306731-5 (Version None)
Quarter: 2012Q2

REPORT INFORMATION
  Report Type: 
  Country: None (occurrence: None)
  Receive Date: 20120420
  Receipt Date: 20120406
  Transmission Date: 20120825
  Serious: Yes (Death)
  Sender: FDA-Public Use
  Company Number: DEP_00613_2012

PATIENT
  Sex: Male

DRUGS (3)
  1. XANAX [Concomitant]
  2. GRALISE [Suspect]
     Indication: OFF LABEL USE
     Dosage: (DF)
     Dates: start: 20120101
  3. GRALISE [Suspect]
     Indication: BACK PAIN
     Dosage: (DF)
     Dates: start: 20120101

REACTIONS (1)
  - DEATH [None]
